FAERS Safety Report 20704473 (Version 1)
Quarter: 2022Q2

REPORT INFORMATION
  Report Type: Spontaneous
  Country: JP (occurrence: JP)
  Receive Date: 20220413
  Receipt Date: 20220413
  Transmission Date: 20220721
  Serious: Yes (Hospitalization, Other)
  Sender: FDA-Public Use
  Company Number: JP-ASTELLAS-2022JP005280

PATIENT
  Age: 88 Year
  Sex: Male
  Weight: 68 kg

DRUGS (17)
  1. TAMSULOSIN HYDROCHLORIDE [Suspect]
     Active Substance: TAMSULOSIN HYDROCHLORIDE
     Indication: Benign prostatic hyperplasia
     Dosage: 0.2 MG, QD
     Route: 048
  2. FUROSEMIDE [Concomitant]
     Active Substance: FUROSEMIDE
     Indication: Product used for unknown indication
     Dosage: 40 MG, QD
     Route: 048
     Dates: start: 202010
  3. LACTULOSE [Concomitant]
     Active Substance: LACTULOSE
     Indication: Product used for unknown indication
     Dosage: 24 G, QD
     Route: 048
  4. BISOPROLOL [Concomitant]
     Active Substance: BISOPROLOL
     Indication: Product used for unknown indication
     Dosage: 5 MG, QD
     Route: 048
  5. AZILSARTAN KAMEDOXOMIL [Concomitant]
     Active Substance: AZILSARTAN KAMEDOXOMIL
     Indication: Product used for unknown indication
     Dosage: 40 MG, QD
     Route: 048
  6. AMLODIPINE BESYLATE [Concomitant]
     Active Substance: AMLODIPINE BESYLATE
     Indication: Product used for unknown indication
     Dosage: 5 MG, QD
     Route: 048
  7. FLUVASTATIN [FLUVASTATIN SODIUM] [Concomitant]
     Indication: Product used for unknown indication
     Dosage: 20 MG, QD
     Route: 048
  8. DUTASTERIDE [Concomitant]
     Active Substance: DUTASTERIDE
     Indication: Product used for unknown indication
     Dosage: 0.5 MG, QD
     Route: 048
  9. AZOSEMIDE [Concomitant]
     Active Substance: AZOSEMIDE
     Indication: Oedema peripheral
     Dosage: 15 MG, QD
     Route: 065
     Dates: start: 202009
  10. SPIRONOLACTONE [Concomitant]
     Active Substance: SPIRONOLACTONE
     Indication: Product used for unknown indication
     Dosage: 12.5 UNK
     Route: 065
     Dates: start: 202011
  11. SPIRONOLACTONE [Concomitant]
     Active Substance: SPIRONOLACTONE
     Dosage: 25 UNK
     Route: 065
     Dates: start: 202011
  12. MAGNESIUM OXIDE [Concomitant]
     Active Substance: MAGNESIUM OXIDE
     Indication: Hypomagnesaemia
     Dosage: 750 MG, QD
     Route: 065
     Dates: start: 202011
  13. TORASEMIDE [TORASEMIDE SODIUM] [Concomitant]
     Indication: Brain natriuretic peptide increased
     Route: 048
     Dates: start: 202101
  14. TORASEMIDE [TORASEMIDE SODIUM] [Concomitant]
     Indication: Specific gravity body fluid increased
  15. CALCIUM POLYSTYRENE SULFONATE [Concomitant]
     Active Substance: CALCIUM POLYSTYRENE SULFONATE
     Indication: Product used for unknown indication
     Dosage: 15 UNK
     Route: 048
     Dates: start: 202101
  16. CALCIUM POLYSTYRENE SULFONATE [Concomitant]
     Active Substance: CALCIUM POLYSTYRENE SULFONATE
     Dosage: 10 UNK
     Route: 048
     Dates: start: 2021
  17. CALCIUM POLYSTYRENE SULFONATE [Concomitant]
     Active Substance: CALCIUM POLYSTYRENE SULFONATE
     Dosage: 5 UNK
     Route: 048
     Dates: start: 20210212

REACTIONS (20)
  - Nephrotic syndrome [Unknown]
  - Loss of consciousness [Recovered/Resolved]
  - Glomerulonephritis membranous [Unknown]
  - Blood potassium increased [Recovering/Resolving]
  - Hypokalaemia [Unknown]
  - Renal impairment [Unknown]
  - Renal atrophy [Unknown]
  - Bradycardia [Recovered/Resolved]
  - Sinus bradycardia [Recovered/Resolved]
  - Oedema peripheral [Recovering/Resolving]
  - Proteinuria [Recovered/Resolved]
  - General physical health deterioration [Unknown]
  - Oedema peripheral [Unknown]
  - Gait disturbance [Unknown]
  - Malaise [Unknown]
  - Hypoalbuminaemia [Unknown]
  - Euthyroid sick syndrome [Unknown]
  - Pleural effusion [Unknown]
  - Brain natriuretic peptide increased [Unknown]
  - Specific gravity body fluid increased [Unknown]

NARRATIVE: CASE EVENT DATE: 20200701
